FAERS Safety Report 6054114-3 (Version None)
Quarter: 2009Q1

REPORT INFORMATION
  Report Type: 
  Country: None (occurrence: None)
  Receive Date: 20090127
  Receipt Date: 20090119
  Transmission Date: 20090719
  Serious: Yes (Hospitalization, Other)
  Sender: FDA-Public Use
  Company Number: NO-PFIZER INC-2008097042

PATIENT

DRUGS (10)
  1. LIPITOR [Suspect]
     Indication: HYPERLIPIDAEMIA
     Dosage: 10 MG, 1X/DAY
     Route: 048
     Dates: start: 19990531, end: 20020925
  2. LIPITOR [Suspect]
     Dosage: 20 MG, UNK
  3. LIPITOR [Suspect]
     Dosage: 40 MG, UNK
  4. PRAVACHOL [Suspect]
     Indication: HYPERLIPIDAEMIA
     Dosage: 40 MG, 1X/DAY
     Route: 048
     Dates: start: 20030818, end: 20030101
  5. LESCOL [Suspect]
     Indication: HYPERLIPIDAEMIA
     Dosage: 40 MG, 1X/DAY
     Route: 048
     Dates: start: 20051101, end: 20060501
  6. ALBYL-E [Concomitant]
     Dosage: UNK
     Route: 048
     Dates: start: 19990301
  7. SELO-ZOK [Concomitant]
     Dosage: UNK
     Route: 048
     Dates: start: 19990301, end: 19991031
  8. GLUCOPHAGE [Concomitant]
     Dosage: UNK
     Route: 048
     Dates: start: 19990101
  9. NITROGLYCERIN [Concomitant]
     Dosage: UNK
     Route: 060
     Dates: start: 19990301
  10. TENORMIN [Concomitant]
     Dosage: UNK
     Route: 048
     Dates: start: 19991101

REACTIONS (4)
  - DIPLOPIA [None]
  - EYELID PTOSIS [None]
  - MYALGIA [None]
  - MYASTHENIA GRAVIS [None]
